FAERS Safety Report 20844744 (Version 5)
Quarter: 2023Q2

REPORT INFORMATION
  Report Type: Spontaneous
  Country: US (occurrence: US)
  Receive Date: 20220518
  Receipt Date: 20230629
  Transmission Date: 20230722
  Serious: No
  Sender: FDA-Public Use
  Company Number: US-PFIZER INC-202200670712

PATIENT
  Age: 42 Year
  Sex: Female

DRUGS (1)
  1. IBRANCE [Suspect]
     Active Substance: PALBOCICLIB
     Indication: HER2 positive breast cancer
     Dosage: ONCE DAILY FOR 21 DAYS ON, 7 DAYS OFF
     Dates: start: 202204

REACTIONS (7)
  - Gait disturbance [Unknown]
  - Speech disorder [Unknown]
  - Dyspnoea [Unknown]
  - Lymphadenopathy [Unknown]
  - Bone pain [Unknown]
  - Skin discolouration [Not Recovered/Not Resolved]
  - Eczema [Not Recovered/Not Resolved]

NARRATIVE: CASE EVENT DATE: 20220601
